FAERS Safety Report 7222102-7 (Version None)
Quarter: 2011Q1

REPORT INFORMATION
  Report Type: 
  Country: None (occurrence: None)
  Receive Date: 20110112
  Receipt Date: 20110107
  Transmission Date: 20110831
  Serious: No
  Sender: FDA-Public Use
  Company Number: KR-JNJFOC-20100908688

PATIENT
  Age: 66 Year
  Sex: Female

DRUGS (6)
  1. DURAGESIC-100 [Suspect]
     Indication: PAIN MANAGEMENT
     Route: 062
  2. ANALGESICS [Concomitant]
     Indication: PAIN MANAGEMENT
     Route: 048
  3. ANTIDIABETIC DRUG [Concomitant]
     Indication: DIABETES MELLITUS
     Route: 048
  4. MOTILIUM M [Concomitant]
     Indication: ANTIEMETIC SUPPORTIVE CARE
     Dosage: 10 MG/TABLET
     Route: 048
  5. ANTIHYPERTENSIVE AGENTS [Concomitant]
     Indication: HYPERTENSION
     Route: 048
  6. UNKNOWN MEDICATION [Concomitant]
     Indication: GASTRITIS
     Route: 048

REACTIONS (6)
  - SENSATION OF PRESSURE [None]
  - NAUSEA [None]
  - DECREASED APPETITE [None]
  - TREATMENT NONCOMPLIANCE [None]
  - VOMITING [None]
  - DIARRHOEA [None]
